FAERS Safety Report 7681643-9 (Version None)
Quarter: 2011Q3

REPORT INFORMATION
  Report Type: 
  Country: None (occurrence: None)
  Receive Date: 20110812
  Receipt Date: 20110808
  Transmission Date: 20111222
  Serious: Yes (Other)
  Sender: FDA-Public Use
  Company Number: PHHY2011MX72269

PATIENT
  Sex: Male

DRUGS (1)
  1. TEGRETOL [Suspect]
     Indication: EPILEPSY
     Dosage: 3 DF, DAILY (200 MG)
     Route: 048
     Dates: start: 20090501

REACTIONS (2)
  - ELECTROCARDIOGRAM ABNORMAL [None]
  - CARDIAC DISORDER [None]
